FAERS Safety Report 6264160 (Version 25)
Quarter: 2013Q2

REPORT INFORMATION
  Report Type: Spontaneous
  Country: US (occurrence: US)
  Receive Date: 20070319
  Receipt Date: 20130614
  Transmission Date: 20140414
  Serious: Yes (Hospitalization, Disabling, Other)
  Sender: FDA-Public Use
  Company Number: PHEH2007US02903

PATIENT
  Age: 47 Year
  Sex: Female

DRUGS (58)
  1. ZOMETA [Suspect]
     Indication: NEOPLASM MALIGNANT
     Dates: start: 20060101, end: 20060417
  2. ZOMETA [Suspect]
     Indication: BONE LOSS
  3. FEMARA [Concomitant]
     Dosage: 2.5 MG, QD
  4. ZOLADEX [Concomitant]
     Dosage: 10.8 MG, UNK
     Route: 058
  5. CELEXA [Concomitant]
     Dosage: 40 MG, QD
  6. XANAX [Concomitant]
     Dosage: 0.5 MG, TID
  7. CELEBREX [Concomitant]
     Dosage: 200 MG, BID
  8. PRILOSEC [Concomitant]
  9. TRICHLORMETHIAZIDE [Concomitant]
     Dosage: 48 MG, QD
  10. CITALOPRAM [Concomitant]
     Dosage: 40 MG, QD
  11. MULTIVITAMINS [Concomitant]
  12. GRAPE SEED [Concomitant]
  13. TYLENOL [Concomitant]
  14. LIDODERM [Concomitant]
  15. PERIDEX [Concomitant]
  16. METFORMIN [Concomitant]
  17. FASLODEX [Concomitant]
  18. OXYCODONE [Concomitant]
  19. NEURONTIN [Concomitant]
  20. TRICOR [Concomitant]
  21. NIASPAN [Concomitant]
  22. LANTUS [Concomitant]
  23. FISH OIL [Concomitant]
  24. CRESTOR [Concomitant]
  25. LOVAZA [Concomitant]
  26. ASPIRIN ^BAYER^ [Concomitant]
     Dosage: 81 MG, QD
  27. NEXIUM [Concomitant]
     Route: 048
  28. METOPROLOL SUCCINATE [Concomitant]
  29. AVASTIN [Concomitant]
  30. TAXOL [Concomitant]
  31. XELODA [Concomitant]
  32. FENTANYL [Concomitant]
     Route: 062
  33. LOMOTIL [Concomitant]
  34. MECLIZINE [Concomitant]
  35. EFFEXOR [Concomitant]
     Dosage: 37.5 MG, QD
     Route: 048
  36. ALEVE                              /00256202/ [Concomitant]
  37. LIPITOR                                 /NET/ [Concomitant]
     Dosage: 10 MG, QD
  38. TAMOXIFEN [Concomitant]
     Indication: BREAST CANCER
     Dosage: 20 MG, QD
     Dates: start: 20030605
  39. CHANTIX [Concomitant]
     Indication: SMOKING CESSATION THERAPY
     Dosage: 0.5 MG, BID
  40. DEXAMETHASONE [Concomitant]
     Dosage: 20 MG, QW
  41. DIPHENHYDRAMINE [Concomitant]
     Dosage: 50 MG, QW
  42. FAMOTIDINE [Concomitant]
     Dosage: 20 MG, QW
  43. VANCOMYCIN [Concomitant]
     Dosage: 1 G, QD
  44. LEVOFLOXACIN [Concomitant]
     Dosage: 500 MG, ONCE/SINGLE
  45. HYDROXYZINE [Concomitant]
     Dosage: 25 MG, QW
     Route: 048
  46. HYDROMORPHONE [Concomitant]
     Dosage: 2 MG, UNK
     Route: 048
  47. EPINEPHRINE [Concomitant]
     Dosage: 1 MG, PRN
  48. HYDROCORTISONE SODIUM SUCCINATE [Concomitant]
     Dosage: 100 MG, PRN
  49. METRONIDAZOLE [Concomitant]
     Dosage: 500 MG, UNK
     Route: 048
  50. DIAZEPAM [Concomitant]
     Dosage: 10 MG, UNK
     Route: 048
  51. MORPHINE [Concomitant]
     Dosage: 4 MG, UNK
  52. DAPTOMYCIN [Concomitant]
     Dosage: 440 MG, UNK
  53. INSULIN LISPRO [Concomitant]
  54. PROTONIX ^PHARMACIA^ [Concomitant]
     Dosage: 40 MG, QD
  55. PROCHLORPERAZINE [Concomitant]
     Dosage: 10 MG, PRN
  56. SENNA-S (DOCUSATE SODIUM/SENNOSIDES) [Concomitant]
     Route: 048
  57. AROMASIN [Concomitant]
     Indication: BREAST CANCER
  58. DESIPRAMINE [Concomitant]
     Dosage: 10 MG, PRN

REACTIONS (98)
  - Cellulitis [Unknown]
  - Folliculitis [Unknown]
  - Pulmonary embolism [Unknown]
  - Road traffic accident [Unknown]
  - Spinal compression fracture [Unknown]
  - Amnesia [Unknown]
  - Glucose tolerance impaired [Unknown]
  - Pneumonia [Recovered/Resolved]
  - Lymphadenopathy [Unknown]
  - Osteonecrosis of jaw [Unknown]
  - General physical health deterioration [Unknown]
  - Anxiety [Unknown]
  - Pain [Unknown]
  - Primary sequestrum [Unknown]
  - Decreased interest [Unknown]
  - Bone disorder [Unknown]
  - Tooth abscess [Unknown]
  - Metastases to liver [Unknown]
  - Blood pressure increased [Unknown]
  - Dizziness [Recovered/Resolved]
  - Weight increased [Unknown]
  - Actinomycosis [Unknown]
  - Polyneuropathy [Unknown]
  - Vertebral foraminal stenosis [Unknown]
  - Spinal claudication [Unknown]
  - Diabetes mellitus [Unknown]
  - Depression [Unknown]
  - Metabolic syndrome [Unknown]
  - Bronchial hyperreactivity [Unknown]
  - Metastases to soft tissue [Unknown]
  - Metastases to lung [Unknown]
  - Dyslipidaemia [Unknown]
  - Insomnia [Unknown]
  - Gastrooesophageal reflux disease [Unknown]
  - Hypertension [Unknown]
  - Orthostatic hypotension [Unknown]
  - Cough [Unknown]
  - Pyrexia [Unknown]
  - Nausea [Unknown]
  - Headache [Unknown]
  - Candida infection [Unknown]
  - Arthralgia [Unknown]
  - Osteoarthritis [Unknown]
  - Aphthous stomatitis [Unknown]
  - Fall [Unknown]
  - Ligament sprain [Unknown]
  - Muscle spasms [Unknown]
  - Excoriation [Unknown]
  - Cardiac disorder [Unknown]
  - Groin abscess [Recovered/Resolved]
  - Diarrhoea [Unknown]
  - Hypothyroidism [Unknown]
  - Palmar-plantar erythrodysaesthesia syndrome [Unknown]
  - Otitis media acute [Unknown]
  - Acute sinusitis [Unknown]
  - Pharyngitis [Unknown]
  - Head injury [Unknown]
  - Diverticulum intestinal [Unknown]
  - Aortic arteriosclerosis [Unknown]
  - Pathological fracture [Unknown]
  - Pulmonary infarction [Unknown]
  - Obstructive airways disorder [Unknown]
  - Haemangioma [Unknown]
  - Alopecia [Unknown]
  - Varicose vein [Unknown]
  - Hepatic steatosis [Unknown]
  - Adrenal mass [Unknown]
  - Metastases to spine [Unknown]
  - Metastases to central nervous system [Recovering/Resolving]
  - Osteosclerosis [Unknown]
  - Intervertebral disc space narrowing [Unknown]
  - Exostosis [Unknown]
  - Spinal deformity [Unknown]
  - Hypertrophy [Unknown]
  - Lumbar spinal stenosis [Unknown]
  - Spinal osteoarthritis [Unknown]
  - Neuropathy peripheral [Unknown]
  - Oedema peripheral [Unknown]
  - Back pain [Recovered/Resolved]
  - Dyspnoea [Recovered/Resolved with Sequelae]
  - Lung disorder [Unknown]
  - Pneumonitis [Unknown]
  - Osteolysis [Unknown]
  - Lymphadenopathy mediastinal [Unknown]
  - Skin ulcer [Unknown]
  - Weight decreased [Unknown]
  - Metastases to bone [Unknown]
  - Hilar lymphadenopathy [Unknown]
  - Liver disorder [Unknown]
  - Adrenal disorder [Unknown]
  - Breast mass [Unknown]
  - Sinus tachycardia [Unknown]
  - Bone lesion [Unknown]
  - Brain neoplasm [Unknown]
  - Subcutaneous abscess [Unknown]
  - Hepatic pain [Unknown]
  - Hepatomegaly [Unknown]
  - Abdominal pain [Unknown]
